FAERS Safety Report 8617165-8 (Version None)
Quarter: 2012Q3

REPORT INFORMATION
  Report Type: 
  Country: None (occurrence: None)
  Receive Date: 20120823
  Receipt Date: 20120810
  Transmission Date: 20120928
  Serious: No
  Sender: FDA-Public Use
  Company Number: US-ASTRAZENECA-2011SE35453

PATIENT
  Age: 86 Year
  Sex: Female

DRUGS (1)
  1. SYMBICORT [Suspect]
     Dosage: 160/4.5 MCG DAILY
     Route: 055

REACTIONS (10)
  - KIDNEY INFECTION [None]
  - DIARRHOEA [None]
  - DRUG HYPERSENSITIVITY [None]
  - BLADDER DISORDER [None]
  - URINARY INCONTINENCE [None]
  - DRY THROAT [None]
  - ORAL FUNGAL INFECTION [None]
  - ORAL CANDIDIASIS [None]
  - POLLAKIURIA [None]
  - BLADDER IRRITATION [None]
